FAERS Safety Report 24681931 (Version 2)
Quarter: 2025Q3

REPORT INFORMATION
  Report Type: Spontaneous
  Country: EU (occurrence: EU)
  Receive Date: 20241130
  Receipt Date: 20250803
  Transmission Date: 20251020
  Serious: Yes (Other)
  Sender: ALEXION PHARMACEUTICALS
  Company Number: EU-AstraZeneca-CH-00751973A

PATIENT
  Age: 50 Year
  Sex: Male

DRUGS (3)
  1. TICAGRELOR [Suspect]
     Active Substance: TICAGRELOR
     Indication: Myocardial infarction
     Dosage: 90 MILLIGRAM, BID
  2. TICAGRELOR [Suspect]
     Active Substance: TICAGRELOR
     Indication: Blood pressure measurement
     Dosage: 60 MILLIGRAM, BID
  3. TICAGRELOR [Suspect]
     Active Substance: TICAGRELOR
     Indication: Blood cholesterol

REACTIONS (1)
  - Myocardial infarction [Unknown]
